FAERS Safety Report 4647606-2 (Version None)
Quarter: 2005Q2

REPORT INFORMATION
  Report Type: 
  Country: None (occurrence: None)
  Receive Date: 20050428
  Receipt Date: 20050422
  Transmission Date: 20051028
  Serious: Yes (Hospitalization)
  Sender: FDA-Public Use
  Company Number: US-MERCK-0504USA03880

PATIENT
  Age: 78 Year
  Sex: Female

DRUGS (5)
  1. VIOXX [Suspect]
     Route: 048
  2. ZOCOR [Concomitant]
     Route: 065
  3. TOPROL-XL [Concomitant]
     Route: 065
  4. LEVOTHROID [Concomitant]
     Route: 065
  5. LISINOPRIL [Concomitant]
     Route: 065

REACTIONS (1)
  - HAEMORRHAGE [None]
